FAERS Safety Report 16151425 (Version 1)
Quarter: 2019Q2

REPORT INFORMATION
  Report Type: Spontaneous
  Country: US (occurrence: US)
  Receive Date: 20190403
  Receipt Date: 20190403
  Transmission Date: 20190711
  Serious: No
  Sender: FDA-Public Use
  Company Number: US-UPSHER-SMITH LABORATORIES, LLC-2018USL00482

PATIENT
  Age: 81 Year
  Sex: Male
  Weight: 87.08 kg

DRUGS (9)
  1. AMLODIPINE [Concomitant]
     Active Substance: AMLODIPINE BESYLATE
  2. CRESTOR [Concomitant]
     Active Substance: ROSUVASTATIN CALCIUM
  3. DIOVAN [Concomitant]
     Active Substance: VALSARTAN
  4. PREVALITE [Suspect]
     Active Substance: CHOLESTYRAMINE
     Indication: DIARRHOEA
     Dosage: 4 G, 1X/DAY (IN THE EVENING)
     Route: 048
     Dates: start: 201809
  5. METFORMIN [Concomitant]
     Active Substance: METFORMIN HYDROCHLORIDE
  6. NADOLOL. [Concomitant]
     Active Substance: NADOLOL
  7. XARELTO [Concomitant]
     Active Substance: RIVAROXABAN
  8. VIREAD [Concomitant]
     Active Substance: TENOFOVIR DISOPROXIL FUMARATE
  9. FOLBEE [Concomitant]
     Active Substance: CYANOCOBALAMIN\FOLIC ACID\PYRIDOXINE HYDROCHLORIDE

REACTIONS (2)
  - Choking [Recovering/Resolving]
  - Foreign body in respiratory tract [Recovering/Resolving]

NARRATIVE: CASE EVENT DATE: 201809
